FAERS Safety Report 23258820 (Version 1)
Quarter: 2023Q4

REPORT INFORMATION
  Report Type: Spontaneous
  Country: US (occurrence: None)
  Receive Date: 20231203
  Receipt Date: 20231203
  Transmission Date: 20240110
  Serious: No
  Sender: FDA-Public Use
  Company Number: None

PATIENT
  Age: 38 Year
  Sex: Female
  Weight: 55.35 kg

DRUGS (7)
  1. TRI-LUMA [Suspect]
     Active Substance: FLUOCINOLONE ACETONIDE\HYDROQUINONE\TRETINOIN
     Indication: Chloasma
     Dosage: OTHER QUANTITY : 1 APPLICATION;?FREQUENCY : AT BEDTIME;?
     Route: 061
     Dates: start: 20231201, end: 20231203
  2. ZONISAMIDE [Concomitant]
     Active Substance: ZONISAMIDE
  3. CLONAZEPAM [Concomitant]
     Active Substance: CLONAZEPAM
  4. LACOSAMIDE [Concomitant]
     Active Substance: LACOSAMIDE
  5. FLUOXETINE [Concomitant]
     Active Substance: FLUOXETINE HYDROCHLORIDE
  6. Mira lax. [Concomitant]
  7. Ibuprofen as needed [Concomitant]

REACTIONS (2)
  - Erythema [None]
  - Swelling [None]

NARRATIVE: CASE EVENT DATE: 20231203
